FAERS Safety Report 9819507 (Version 3)
Quarter: 2014Q2

REPORT INFORMATION
  Report Type: Report from Study
  Country: JP (occurrence: JP)
  Receive Date: 20140115
  Receipt Date: 20140606
  Transmission Date: 20141212
  Serious: Yes (Death)
  Sender: FDA-Public Use
  Company Number: JP-009507513-1401JPN006205

PATIENT
  Age: 91 Year
  Sex: Male

DRUGS (8)
  1. DIAZOXIDE CAPSULES 25 MG ^MSD^ [Suspect]
     Indication: HYPOGLYCAEMIA
     Dosage: 50 MG IN THE MORNING AND 75 MG IN THE EVENING, QD
     Route: 048
     Dates: start: 20130731, end: 20130909
  2. MEMARY [Concomitant]
     Dosage: 5 MG, QD
     Route: 048
  3. NEODOPASOL [Concomitant]
     Dosage: 3 DF, QD (DIVIDED DOSE FREQUENCY UNKNOWN)
     Route: 048
  4. YOKU-KAN-SAN [Concomitant]
     Dosage: 3 DF, QD, (DIVIDED DOSE FREQUENCY UNKNOWN)
     Route: 048
  5. ZYLORIC [Concomitant]
     Dosage: 100 MG, QD
     Route: 048
  6. ADALAT CR [Concomitant]
     Dosage: 20 MG, QD
     Route: 048
  7. BAYASPIRIN [Concomitant]
     Dosage: 100 MG, QD
     Route: 048
  8. FLUITRAN [Concomitant]
     Dosage: 1 MG, QD
     Route: 048

REACTIONS (1)
  - Death [Fatal]
